FAERS Safety Report 19732371 (Version 4)
Quarter: 2021Q4

REPORT INFORMATION
  Report Type: Spontaneous
  Country: US (occurrence: US)
  Receive Date: 20210822
  Receipt Date: 20211115
  Transmission Date: 20220303
  Serious: Yes (Life-Threatening, Other)
  Sender: FDA-Public Use
  Company Number: US-TEVA-2021-US-1944359

PATIENT
  Age: 70 Year
  Sex: Male

DRUGS (9)
  1. VALSARTAN [Suspect]
     Active Substance: VALSARTAN
     Indication: Hypertension
     Dosage: DOSAGE 160 MG
     Route: 065
     Dates: start: 20170830, end: 20180215
  2. VALSARTAN [Suspect]
     Active Substance: VALSARTAN
     Indication: Hypertension
     Dosage: DOSAGE: 160 MG
     Route: 065
     Dates: start: 20170217, end: 20170422
  3. VALSARTAN [Suspect]
     Active Substance: VALSARTAN
     Indication: Hypertension
     Dosage: DOSAGE: 160 MG
     Route: 065
     Dates: start: 20170421, end: 20180809
  4. VALSARTAN [Suspect]
     Active Substance: VALSARTAN
     Indication: Hypertension
     Dosage: DOSAGE: 160 MG
     Route: 065
     Dates: start: 20180809, end: 20190419
  5. VALSARTAN [Suspect]
     Active Substance: VALSARTAN
     Indication: Hypertension
     Dosage: DOSAGE: 160 MG
     Route: 065
     Dates: start: 20181017, end: 20181219
  6. VALSARTAN [Suspect]
     Active Substance: VALSARTAN
     Dosage: DOSAGE: 160 MG
     Route: 065
  7. VALSARTAN [Suspect]
     Active Substance: VALSARTAN
     Dosage: DOSAGE: 160 MG
     Route: 065
  8. DIOVAN [Suspect]
     Active Substance: VALSARTAN
     Indication: Essential hypertension
     Dosage: 160 MILLIGRAM DAILY;
     Route: 048
     Dates: start: 20180809, end: 20210218
  9. NORVASC [Concomitant]
     Active Substance: AMLODIPINE BESYLATE
     Indication: Essential hypertension
     Dosage: 10 MILLIGRAM DAILY;
     Route: 048
     Dates: start: 20180809, end: 20210218

REACTIONS (11)
  - Cholangiocarcinoma [Not Recovered/Not Resolved]
  - Hepatocellular carcinoma [Not Recovered/Not Resolved]
  - Metastases to bone [Not Recovered/Not Resolved]
  - Gastric cancer [Unknown]
  - Metastases to lung [Not Recovered/Not Resolved]
  - Metastases to spine [Unknown]
  - Thrombocytopenia [Not Recovered/Not Resolved]
  - Anaemia [Not Recovered/Not Resolved]
  - Tibia fracture [Not Recovered/Not Resolved]
  - Fibula fracture [Not Recovered/Not Resolved]
  - Poor quality product administered [Unknown]

NARRATIVE: CASE EVENT DATE: 20200101
